FAERS Safety Report 9231494 (Version 1)
Quarter: 2013Q2

REPORT INFORMATION
  Report Type: Spontaneous
  Country: NO (occurrence: NO)
  Receive Date: 20130415
  Receipt Date: 20130415
  Transmission Date: 20140414
  Serious: Yes (Hospitalization, Congenital Anomaly)
  Sender: FDA-Public Use
  Company Number: NO-GLAXOSMITHKLINE-B0680427A

PATIENT
  Age: 0 None
  Sex: Female

DRUGS (4)
  1. LAMICTAL [Suspect]
     Indication: PRODUCT USED FOR UNKNOWN INDICATION
     Route: 064
  2. TRILAFON [Suspect]
     Indication: MENTAL DISORDER
     Route: 064
  3. DISIPAL [Suspect]
     Indication: EPILEPSY
     Route: 064
     Dates: end: 20020927
  4. ORFIRIL [Suspect]
     Indication: EPILEPSY
     Route: 064

REACTIONS (14)
  - Epilepsy [Not Recovered/Not Resolved]
  - Mental retardation [Not Recovered/Not Resolved]
  - Dyskinesia [Unknown]
  - Cognitive disorder [Unknown]
  - Attention deficit/hyperactivity disorder [Not Recovered/Not Resolved]
  - Sensorimotor disorder [Unknown]
  - Drug withdrawal syndrome neonatal [Recovered/Resolved]
  - Vitamin K deficiency [Unknown]
  - Respiratory syncytial virus infection [Unknown]
  - Eye movement disorder [Unknown]
  - Lactose intolerance [Unknown]
  - Fall [Unknown]
  - Foetal exposure during pregnancy [Recovered/Resolved]
  - Exposure during breast feeding [Recovered/Resolved with Sequelae]
